FAERS Safety Report 5427662-4 (Version None)
Quarter: 2007Q3

REPORT INFORMATION
  Report Type: 
  Country: None (occurrence: None)
  Receive Date: 20070823
  Receipt Date: 20070807
  Transmission Date: 20080115
  Serious: Yes (Death)
  Sender: FDA-Public Use
  Company Number: A-CH2007-17078

PATIENT
  Age: 62 Year
  Sex: Male
  Weight: 83 kg

DRUGS (8)
  1. TRACLEER [Suspect]
     Indication: PULMONARY HYPERTENSION
     Dosage: 125 MG, BID, ORAL; 62.25 MG, BID, ORAL
     Route: 048
     Dates: start: 20050101, end: 20060601
  2. TRACLEER [Suspect]
     Indication: PULMONARY HYPERTENSION
     Dosage: 125 MG, BID, ORAL; 62.25 MG, BID, ORAL
     Route: 048
     Dates: start: 20060601, end: 20070703
  3. SILDENAFIL TABLET [Concomitant]
  4. ATACAND [Concomitant]
  5. EUPHYLLIN N (THEOPHYLLINE) [Concomitant]
  6. TOREM (TORASEMIDE) [Concomitant]
  7. NEBIVOLOL HCL [Concomitant]
  8. DIGITOXIN TAB [Concomitant]

REACTIONS (2)
  - CARDIAC FAILURE [None]
  - SUDDEN DEATH [None]
